FAERS Safety Report 8089294-1 (Version None)
Quarter: 2012Q1

REPORT INFORMATION
  Report Type: 
  Country: None (occurrence: None)
  Receive Date: 20120128
  Receipt Date: 20110621
  Transmission Date: 20120608
  Serious: No
  Sender: FDA-Public Use
  Company Number: US-ABBOTT-11P-163-0719566-00

PATIENT
  Age: 50 Year
  Sex: Female

DRUGS (7)
  1. SYNTHROID [Concomitant]
     Indication: HYPOTHYROIDISM
  2. HUMIRA [Suspect]
     Indication: RHEUMATOID ARTHRITIS
     Dates: start: 20110201
  3. HYDROCODONE BITARTRATE [Concomitant]
     Indication: PAIN
     Dosage: 5/500 MG PRN  DAILY
  4. PREDNISONE TAB [Concomitant]
     Indication: PRODUCT USED FOR UNKNOWN INDICATION
     Dosage: TAPERING THE DOSE UNTIL STOPPED
  5. PRILOSEC [Concomitant]
     Indication: GASTROOESOPHAGEAL REFLUX DISEASE
  6. PLAQUENIL [Concomitant]
     Indication: PRODUCT USED FOR UNKNOWN INDICATION
  7. CLARITIN [Concomitant]
     Indication: HYPERSENSITIVITY

REACTIONS (4)
  - DRUG INEFFECTIVE [None]
  - PAIN IN EXTREMITY [None]
  - ARTHRALGIA [None]
  - RHEUMATOID ARTHRITIS [None]
